FAERS Safety Report 16266168 (Version 1)
Quarter: 2019Q2

REPORT INFORMATION
  Report Type: Spontaneous
  Country: ES (occurrence: ES)
  Receive Date: 20190502
  Receipt Date: 20190502
  Transmission Date: 20190711
  Serious: Yes (Death, Hospitalization)
  Sender: FDA-Public Use
  Company Number: ES-TEVA-2019-ES-1044233

PATIENT
  Age: 59 Year
  Sex: Male

DRUGS (2)
  1. OXALIPLATINO (7351A) [Suspect]
     Active Substance: OXALIPLATIN
     Route: 065
     Dates: start: 20181210
  2. FLUOROURACILO (272A) [Suspect]
     Active Substance: FLUOROURACIL
     Dates: start: 20181210

REACTIONS (2)
  - Febrile neutropenia [Fatal]
  - Sepsis [Fatal]

NARRATIVE: CASE EVENT DATE: 20181219
